FAERS Safety Report 13801303 (Version 1)
Quarter: 2017Q3

REPORT INFORMATION
  Report Type: Spontaneous
  Country: US (occurrence: US)
  Receive Date: 20170727
  Receipt Date: 20170727
  Transmission Date: 20171127
  Serious: No
  Sender: FDA-Public Use
  Company Number: US-BAUSCH-BL-2016-019780

PATIENT
  Age: 65 Year
  Sex: Male
  Weight: 69.3 kg

DRUGS (1)
  1. ZEGERID [Suspect]
     Active Substance: OMEPRAZOLE\SODIUM BICARBONATE
     Indication: GASTROOESOPHAGEAL REFLUX DISEASE
     Route: 048
     Dates: start: 20160812, end: 20160812

REACTIONS (1)
  - Oesophageal discomfort [Unknown]

NARRATIVE: CASE EVENT DATE: 20160812
